FAERS Safety Report 4986399-6 (Version None)
Quarter: 2006Q2

REPORT INFORMATION
  Report Type: 
  Country: None (occurrence: None)
  Receive Date: 20060424
  Receipt Date: 20060403
  Transmission Date: 20061013
  Serious: No
  Sender: FDA-Public Use
  Company Number: TPA2006A00596

PATIENT
  Age: 76 Year
  Sex: Male
  Weight: 90.7194 kg

DRUGS (4)
  1. ROZEREM [Suspect]
     Indication: INSOMNIA
     Dosage: SEE IMAGE
     Route: 048
     Dates: start: 20060330
  2. CELEXA [Concomitant]
  3. COUMADIN [Concomitant]
  4. REMERON [Concomitant]

REACTIONS (2)
  - FATIGUE [None]
  - MIGRAINE [None]
